FAERS Safety Report 8967179 (Version 5)
Quarter: 2013Q4

REPORT INFORMATION
  Report Type: Report from Study
  Country: MY (occurrence: MY)
  Receive Date: 20121217
  Receipt Date: 20131104
  Transmission Date: 20140711
  Serious: Yes (Disabling)
  Sender: FDA-Public Use
  Company Number: MY-SANOFI-AVENTIS-2012SA091000

PATIENT
  Sex: Male

DRUGS (15)
  1. AFLIBERCEPT [Suspect]
     Indication: COLORECTAL CANCER
     Route: 042
     Dates: start: 20121009, end: 20121009
  2. AFLIBERCEPT [Suspect]
     Indication: COLORECTAL CANCER
     Route: 042
     Dates: start: 20121108, end: 20121108
  3. AFLIBERCEPT [Suspect]
     Indication: COLORECTAL CANCER
     Route: 042
     Dates: start: 20121130, end: 20121130
  4. 5-FU [Suspect]
     Indication: COLORECTAL CANCER
     Route: 040
     Dates: start: 20121008, end: 20121008
  5. 5-FU [Suspect]
     Indication: COLORECTAL CANCER
     Route: 040
     Dates: start: 20121108, end: 20121108
  6. 5-FU [Suspect]
     Indication: COLORECTAL CANCER
     Route: 041
     Dates: start: 20121108, end: 20121108
  7. 5-FU [Suspect]
     Indication: COLORECTAL CANCER
     Route: 041
     Dates: start: 20121008, end: 20121008
  8. 5-FU [Suspect]
     Indication: COLORECTAL CANCER
     Route: 040
     Dates: start: 20121130, end: 20121130
  9. 5-FU [Suspect]
     Indication: COLORECTAL CANCER
     Route: 041
     Dates: start: 20121130, end: 20121130
  10. IRINOTECAN [Suspect]
     Indication: COLORECTAL CANCER
     Route: 041
     Dates: start: 20121008, end: 20121008
  11. IRINOTECAN [Suspect]
     Indication: COLORECTAL CANCER
     Route: 041
     Dates: start: 20121108, end: 20121108
  12. IRINOTECAN [Suspect]
     Indication: COLORECTAL CANCER
     Route: 041
     Dates: start: 20121130, end: 20121130
  13. LEUCOVORIN [Suspect]
     Indication: COLORECTAL CANCER
     Route: 041
     Dates: start: 20121008, end: 20121008
  14. LEUCOVORIN [Suspect]
     Indication: COLORECTAL CANCER
     Route: 041
     Dates: start: 20121108, end: 20121108
  15. LEUCOVORIN [Suspect]
     Indication: COLORECTAL CANCER
     Route: 041
     Dates: start: 20121130, end: 20121130

REACTIONS (1)
  - Skin reaction [Recovered/Resolved]
